FAERS Safety Report 22960714 (Version 2)
Quarter: 2023Q4

REPORT INFORMATION
  Report Type: Spontaneous
  Country: CR (occurrence: CR)
  Receive Date: 20230920
  Receipt Date: 20231102
  Transmission Date: 20240110
  Serious: Yes (Other)
  Sender: FDA-Public Use
  Company Number: CR-002147023-NVSC2023CR069822

PATIENT
  Sex: Female

DRUGS (6)
  1. FULVESTRANT [Suspect]
     Active Substance: FULVESTRANT
     Indication: Product used for unknown indication
     Route: 065
  2. KISQALI [Suspect]
     Active Substance: RIBOCICLIB
     Dosage: 600 MG, QD
     Route: 048
     Dates: start: 2022
  3. KISQALI [Suspect]
     Active Substance: RIBOCICLIB
     Dosage: 600 MG, QD
     Route: 048
     Dates: start: 202206
  4. KISQALI [Suspect]
     Active Substance: RIBOCICLIB
     Indication: Breast cancer
     Dosage: 600 MG, QD
     Route: 048
     Dates: start: 20220401
  5. ZOMETA [Suspect]
     Active Substance: ZOLEDRONIC ACID
     Indication: Product used for unknown indication
     Dosage: UNK
     Route: 065
  6. FULVESTRANT [Concomitant]
     Active Substance: FULVESTRANT
     Indication: Product used for unknown indication
     Dosage: UNK
     Route: 065

REACTIONS (29)
  - Metastases to bone [Not Recovered/Not Resolved]
  - Pain [Unknown]
  - Pain in extremity [Unknown]
  - Nausea [Recovering/Resolving]
  - Vomiting [Unknown]
  - Fatigue [Recovering/Resolving]
  - Hot flush [Unknown]
  - Arthralgia [Recovering/Resolving]
  - Gait disturbance [Unknown]
  - Feeling hot [Unknown]
  - Onychomycosis [Unknown]
  - Nail discolouration [Unknown]
  - Feeling abnormal [Unknown]
  - Hypertension [Unknown]
  - Skin burning sensation [Unknown]
  - Dermatitis allergic [Unknown]
  - Limb discomfort [Unknown]
  - Muscular weakness [Unknown]
  - Blister [Unknown]
  - Ulcer [Unknown]
  - Dry skin [Unknown]
  - Pruritus [Unknown]
  - Discomfort [Unknown]
  - Malaise [Unknown]
  - Abscess [Unknown]
  - Toothache [Unknown]
  - Facial pain [Unknown]
  - Headache [Unknown]
  - Neuralgia [Recovering/Resolving]

NARRATIVE: CASE EVENT DATE: 20220101
